FAERS Safety Report 6607381-9 (Version None)
Quarter: 2010Q1

REPORT INFORMATION
  Report Type: 
  Country: None (occurrence: None)
  Receive Date: 20100301
  Receipt Date: 20100224
  Transmission Date: 20100710
  Serious: Yes (Hospitalization)
  Sender: FDA-Public Use
  Company Number: DE-BIOGENIDEC-2010BI006284

PATIENT
  Age: 20 Year
  Sex: Female
  Weight: 87 kg

DRUGS (1)
  1. AVONEX [Suspect]
     Indication: RELAPSING-REMITTING MULTIPLE SCLEROSIS
     Route: 030
     Dates: start: 20090401, end: 20100222

REACTIONS (3)
  - CENTRAL NERVOUS SYSTEM LESION [None]
  - OPTIC NEURITIS [None]
  - PARAESTHESIA [None]
